FAERS Safety Report 8776433 (Version 1)
Quarter: 2012Q4

REPORT INFORMATION
  Report Type: 
  Country: US (occurrence: US)
  Receive Date: 20120910
  Receipt Date: 20120910
  Transmission Date: 20130627
  Serious: Yes (Hospitalization)
  Sender: FDA-Public Use
  Company Number: PHHY2012US077334

PATIENT
  Age: 70 Year
  Sex: Female

DRUGS (6)
  1. METHOTREXATE [Suspect]
     Indication: CENTRAL NERVOUS SYSTEM LYMPHOMA
     Route: 042
  2. RITUXIMAB [Concomitant]
  3. METHOTREXATE [Concomitant]
  4. TEMOZOLOMIDE [Concomitant]
  5. RADIATION THERAPY [Concomitant]
  6. LEUCOVORIN [Concomitant]

REACTIONS (22)
  - Colonic pseudo-obstruction [Recovering/Resolving]
  - Fatigue [Recovering/Resolving]
  - Abdominal pain [Recovering/Resolving]
  - Diarrhoea [Recovering/Resolving]
  - Malaise [Recovering/Resolving]
  - Abdominal distension [Recovering/Resolving]
  - Abdominal tenderness [Recovering/Resolving]
  - Proctocolitis [Recovering/Resolving]
  - Back pain [Recovering/Resolving]
  - Haematochezia [Recovering/Resolving]
  - Retroperitoneal oedema [Recovering/Resolving]
  - Large intestinal ulcer [Recovering/Resolving]
  - Ischaemia [Recovering/Resolving]
  - Hypoperfusion [Recovering/Resolving]
  - Pancytopenia [Recovering/Resolving]
  - Anaemia [Recovering/Resolving]
  - Thrombocytopenia [Recovering/Resolving]
  - Neutropenia [Recovering/Resolving]
  - Yersinia infection [Recovering/Resolving]
  - Pyrexia [Recovered/Resolved]
  - Candidiasis [Recovering/Resolving]
  - Hypokalaemia [Recovering/Resolving]
